FAERS Safety Report 18756975 (Version 2)
Quarter: 2021Q1

REPORT INFORMATION
  Report Type: Spontaneous
  Country: AR (occurrence: AR)
  Receive Date: 20210119
  Receipt Date: 20210125
  Transmission Date: 20210419
  Serious: Yes (Other)
  Sender: FDA-Public Use
  Company Number: AR-PFIZER INC-2021028246

PATIENT
  Age: 82 Year
  Sex: Male

DRUGS (1)
  1. SUTENT [Suspect]
     Active Substance: SUNITINIB MALATE
     Indication: METASTATIC RENAL CELL CARCINOMA
     Dosage: 37.5 MG, CYCLIC (DAILY, SCHEME 4/2)
     Dates: start: 20180702, end: 202011

REACTIONS (5)
  - Head injury [Unknown]
  - Dementia Alzheimer^s type [Unknown]
  - Aggression [Unknown]
  - Cerebral thrombosis [Unknown]
  - Anger [Unknown]
